FAERS Safety Report 14320890 (Version 1)
Quarter: 2017Q4

REPORT INFORMATION
  Report Type: Other
  Country: AT (occurrence: AT)
  Receive Date: 20171223
  Receipt Date: 20171223
  Transmission Date: 20180321
  Serious: Yes (Other)
  Sender: FDA-Public Use
  Company Number: AT-MACLEODS PHARMACEUTICALS US LTD-MAC2017007137

PATIENT

DRUGS (17)
  1. ABILIFY [Suspect]
     Active Substance: ARIPIPRAZOLE
     Dosage: 30 MG, UNK
     Route: 048
     Dates: start: 20160528
  2. ABILIFY [Suspect]
     Active Substance: ARIPIPRAZOLE
     Dosage: 20 MG, UNK
     Route: 048
     Dates: start: 20160422, end: 20160506
  3. TRUXAL [Suspect]
     Active Substance: CHLORPROTHIXENE
     Dosage: 200 MG, UNK
     Route: 048
     Dates: start: 20160506, end: 20160517
  4. TRUXAL [Suspect]
     Active Substance: CHLORPROTHIXENE
     Dosage: 400 MG, UNK
     Route: 048
     Dates: start: 20160426, end: 20160505
  5. TRUXAL [Suspect]
     Active Substance: CHLORPROTHIXENE
     Dosage: 200 UNK, UNK
     Route: 048
     Dates: start: 20160424, end: 20160424
  6. OLANZAPINE 10MG TABLETS [Suspect]
     Active Substance: OLANZAPINE
     Indication: ACUTE PSYCHOSIS
     Dosage: 10 MG, UNK
     Route: 048
     Dates: start: 20160415
  7. ABILIFY [Suspect]
     Active Substance: ARIPIPRAZOLE
     Dosage: 30 MG, UNK
     Route: 048
     Dates: start: 20160507, end: 20160526
  8. ALPRAZOLAM. [Concomitant]
     Active Substance: ALPRAZOLAM
     Indication: PRODUCT USED FOR UNKNOWN INDICATION
     Dosage: 1 MG, UNK
     Route: 048
     Dates: start: 20160425
  9. ABILIFY [Suspect]
     Active Substance: ARIPIPRAZOLE
     Dosage: 20 MG, UNK
     Route: 048
     Dates: start: 20160527, end: 20160527
  10. TRUXAL [Suspect]
     Active Substance: CHLORPROTHIXENE
     Dosage: 160 MG, UNK
     Route: 048
     Dates: start: 20160518
  11. ABILIFY [Suspect]
     Active Substance: ARIPIPRAZOLE
     Indication: ACUTE PSYCHOSIS
     Dosage: 30 MG, UNK
     Route: 048
     Dates: start: 20160420, end: 20160421
  12. XANOR [Concomitant]
     Active Substance: ALPRAZOLAM
     Indication: PRODUCT USED FOR UNKNOWN INDICATION
     Dosage: 1 MG, UNK
     Route: 065
     Dates: start: 20160425
  13. TRUXAL [Suspect]
     Active Substance: CHLORPROTHIXENE
     Indication: PRODUCT USED FOR UNKNOWN INDICATION
     Dosage: 250 MG, UNK
     Route: 048
     Dates: start: 20160425, end: 20160425
  14. ZYPREXA [Suspect]
     Active Substance: OLANZAPINE
     Dosage: 20 MG, UNK
     Route: 048
     Dates: start: 20160420
  15. OLANZAPINE 10MG TABLETS [Suspect]
     Active Substance: OLANZAPINE
     Dosage: 20 MG, UNK
     Route: 048
     Dates: start: 20160420
  16. TRUXAL [Suspect]
     Active Substance: CHLORPROTHIXENE
     Dosage: 150 MG, UNK
     Route: 048
     Dates: start: 20160422
  17. ZYPREXA [Suspect]
     Active Substance: OLANZAPINE
     Indication: ACUTE PSYCHOSIS
     Dosage: 10 MG, UNK
     Route: 048
     Dates: start: 20160415

REACTIONS (4)
  - Hepatic enzyme increased [Recovering/Resolving]
  - Off label use [Unknown]
  - Akathisia [Unknown]
  - Product use in unapproved indication [Unknown]

NARRATIVE: CASE EVENT DATE: 20160429
